FAERS Safety Report 15809154 (Version 1)
Quarter: 2019Q1

REPORT INFORMATION
  Report Type: Spontaneous
  Country: US (occurrence: US)
  Receive Date: 20190110
  Receipt Date: 20190110
  Transmission Date: 20190417
  Serious: No
  Sender: FDA-Public Use
  Company Number: US-ACTELION-A-US2018-183966

PATIENT
  Age: 60 Year
  Sex: Female

DRUGS (1)
  1. TRACLEER [Suspect]
     Active Substance: BOSENTAN
     Indication: RAYNAUD^S PHENOMENON
     Dosage: 62.5 MG, UNK
     Route: 048

REACTIONS (4)
  - Impaired healing [Unknown]
  - Skin ulcer [Unknown]
  - Pain in extremity [Unknown]
  - Poor peripheral circulation [Unknown]
